FAERS Safety Report 7395507-1 (Version None)
Quarter: 2011Q2

REPORT INFORMATION
  Report Type: 
  Country: None (occurrence: None)
  Receive Date: 20110405
  Receipt Date: 20110307
  Transmission Date: 20111010
  Serious: Yes (Hospitalization, Other)
  Sender: FDA-Public Use
  Company Number: US-BAYER-2010-006268

PATIENT
  Sex: Female
  Weight: 90.703 kg

DRUGS (9)
  1. SYNTHROID [Concomitant]
  2. AUGMENTIN [Concomitant]
  3. XANAX [Concomitant]
  4. ASPIRIN [Concomitant]
  5. YASMIN [Suspect]
     Indication: ANXIETY
     Dosage: UNK
     Dates: start: 20000101, end: 20080101
  6. DARVOCET-N 50 [Concomitant]
  7. YASMIN [Suspect]
     Indication: DEPRESSION
  8. LEXAPRO [Concomitant]
     Indication: DEPRESSION
  9. TOPAMAX [Concomitant]

REACTIONS (5)
  - PULMONARY EMBOLISM [None]
  - ANXIETY [None]
  - STRESS [None]
  - DEEP VEIN THROMBOSIS [None]
  - THROMBOSIS [None]
